FAERS Safety Report 13325181 (Version 2)
Quarter: 2017Q1

REPORT INFORMATION
  Report Type: Report from Study
  Country: US (occurrence: US)
  Receive Date: 20170310
  Receipt Date: 20170321
  Transmission Date: 20170428
  Serious: Yes (Congenital Anomaly, Other)
  Sender: FDA-Public Use
  Company Number: US-PFIZER INC-2017088921

PATIENT
  Sex: Male

DRUGS (10)
  1. XANAX [Suspect]
     Active Substance: ALPRAZOLAM
     Dosage: UNK
     Route: 064
  2. BELIMUMAB [Suspect]
     Active Substance: BELIMUMAB
     Indication: SYSTEMIC LUPUS ERYTHEMATOSUS
     Dosage: 400 MG, CYCLIC
     Route: 064
     Dates: start: 20150804, end: 20151208
  3. BENZYLPENICILLIN [Concomitant]
     Active Substance: PENICILLIN G
     Indication: GROUP B STREPTOCOCCUS NEONATAL SEPSIS
     Dosage: UNK
     Route: 064
  4. NICODERM CQ [Suspect]
     Active Substance: NICOTINE
     Dosage: UNK
     Route: 064
  5. PERCOCET [Suspect]
     Active Substance: ACETAMINOPHEN\OXYCODONE HYDROCHLORIDE
     Dosage: UNK
     Route: 064
  6. VYVANSE [Suspect]
     Active Substance: LISDEXAMFETAMINE DIMESYLATE
     Dosage: UNK
     Route: 064
  7. PLAQUENIL [Suspect]
     Active Substance: HYDROXYCHLOROQUINE SULFATE
     Dosage: UNK
     Route: 064
  8. METHOTREXATE. [Concomitant]
     Active Substance: METHOTREXATE
     Dosage: UNK
     Route: 064
     Dates: end: 201512
  9. LAMICTAL [Suspect]
     Active Substance: LAMOTRIGINE
     Dosage: UNK
     Route: 064
  10. FOLATE [Concomitant]
     Active Substance: FOLATE SODIUM
     Route: 064

REACTIONS (5)
  - Maternal exposure during pregnancy [Unknown]
  - Congenital spinal cord anomaly [Unknown]
  - Viral upper respiratory tract infection [Unknown]
  - Congenital pyelocaliectasis [Unknown]
  - Pyrexia [Unknown]

NARRATIVE: CASE EVENT DATE: 20160818
